FAERS Safety Report 8444560-2 (Version None)
Quarter: 2012Q2

REPORT INFORMATION
  Report Type: 
  Country: None (occurrence: None)
  Receive Date: 20120611
  Receipt Date: 20120531
  Transmission Date: 20120825
  Serious: Yes (Hospitalization)
  Sender: FDA-Public Use
  Company Number: 2012SP029617

PATIENT
  Age: 56 Year
  Sex: Male
  Weight: 67 kg

DRUGS (13)
  1. REBETOL [Suspect]
     Indication: HEPATITIS C
     Dosage: 800;200 MG, QD, PO
     Route: 048
     Dates: start: 20120327, end: 20120408
  2. REBETOL [Suspect]
     Indication: HEPATITIS C
     Dosage: 800;200 MG, QD, PO
     Route: 048
     Dates: start: 20120501
  3. NOVOSEVEN [Concomitant]
  4. PRIMPERAN TAB [Concomitant]
  5. AMARYL [Concomitant]
  6. TELAVIC (ANTIVIRALS NOS) [Suspect]
     Indication: HEPATITIS C
     Dosage: 2250 MG, QD, PO
     Route: 048
     Dates: start: 20120327, end: 20120408
  7. PEG-INTRON [Suspect]
     Indication: HEPATITIS C
     Dosage: 1,5 MCG/KG, QW, SC
     Route: 058
     Dates: start: 20120508
  8. PEG-INTRON [Suspect]
     Indication: HEPATITIS C
     Dosage: 1,5 MCG/KG, QW, SC
     Route: 058
     Dates: start: 20120327, end: 20120410
  9. PEG-INTRON [Suspect]
     Indication: HEPATITIS C
     Dosage: 1,5 MCG/KG, QW, SC
     Route: 058
     Dates: start: 20120417, end: 20120501
  10. LOSARTAN POTASSIUM [Concomitant]
  11. BASEN [Concomitant]
  12. NORVASC [Concomitant]
  13. LANSOPRAZOLE [Concomitant]

REACTIONS (4)
  - URINARY TRACT INFECTION [None]
  - RENAL IMPAIRMENT [None]
  - URINARY TRACT OBSTRUCTION [None]
  - RENAL DISORDER [None]
